FAERS Safety Report 11685694 (Version 1)
Quarter: 2015Q4

REPORT INFORMATION
  Report Type: Report from Study
  Country: US (occurrence: US)
  Receive Date: 20151030
  Receipt Date: 20151030
  Transmission Date: 20160304
  Serious: Yes (Hospitalization)
  Sender: FDA-Public Use
  Company Number: US-GILEAD-2015-0179672

PATIENT
  Age: 75 Year
  Sex: Female

DRUGS (12)
  1. AMBRISENTAN [Suspect]
     Active Substance: AMBRISENTAN
     Indication: PULMONARY HYPERTENSION
     Dosage: 10 MG, QD
     Route: 065
     Dates: start: 20150901
  2. TYLENOL [Concomitant]
     Active Substance: ACETAMINOPHEN
  3. LIPITOR [Concomitant]
     Active Substance: ATORVASTATIN CALCIUM
  4. LANTUS [Concomitant]
     Active Substance: INSULIN GLARGINE
  5. ALEVE [Concomitant]
     Active Substance: NAPROXEN SODIUM
  6. IRBESARTAN. [Concomitant]
     Active Substance: IRBESARTAN
  7. LASIX [Concomitant]
     Active Substance: FUROSEMIDE
  8. ADCIRCA [Suspect]
     Active Substance: TADALAFIL
     Indication: PRODUCT USED FOR UNKNOWN INDICATION
     Route: 065
  9. XARELTO [Concomitant]
     Active Substance: RIVAROXABAN
  10. TERAZOSIN [Concomitant]
     Active Substance: TERAZOSIN\TERAZOSIN HYDROCHLORIDE
  11. METFORMIN [Concomitant]
     Active Substance: METFORMIN HYDROCHLORIDE
  12. CALCIUM [Concomitant]
     Active Substance: CALCIUM

REACTIONS (1)
  - Dyspnoea [Recovering/Resolving]

NARRATIVE: CASE EVENT DATE: 20151024
